FAERS Safety Report 5616637-8 (Version None)
Quarter: 2008Q1

REPORT INFORMATION
  Report Type: 
  Country: None (occurrence: None)
  Receive Date: 20080207
  Receipt Date: 20071127
  Transmission Date: 20080703
  Serious: No
  Sender: FDA-Public Use
  Company Number: A0696067A

PATIENT
  Age: 73 Year
  Sex: Male

DRUGS (6)
  1. PAXIL CR [Suspect]
     Indication: DEPRESSION
     Dosage: 12.5MG VARIABLE DOSE
     Route: 048
     Dates: start: 20070801
  2. QUINAPRIL HCL [Concomitant]
  3. METOPROLOL TARTRATE [Concomitant]
  4. ARICEPT [Concomitant]
  5. NAMENDA [Concomitant]
  6. ATIVAN [Concomitant]

REACTIONS (4)
  - DRUG ADMINISTRATION ERROR [None]
  - HYPERHIDROSIS [None]
  - WEIGHT DECREASED [None]
  - WEIGHT INCREASED [None]
